FAERS Safety Report 6534607-2 (Version None)
Quarter: 2010Q1

REPORT INFORMATION
  Report Type: 
  Country: None (occurrence: None)
  Receive Date: 20100112
  Receipt Date: 20100111
  Transmission Date: 20100710
  Serious: Yes (Hospitalization)
  Sender: FDA-Public Use
  Company Number: A0838810A

PATIENT
  Age: 63 Year
  Sex: Male

DRUGS (1)
  1. AVANDIA [Suspect]
     Dosage: 8MG PER DAY
     Route: 065
     Dates: start: 20040101, end: 20080301

REACTIONS (4)
  - ACUTE CORONARY SYNDROME [None]
  - AORTIC ANEURYSM [None]
  - CARDIAC FAILURE CONGESTIVE [None]
  - MYOCARDIAL INFARCTION [None]
